FAERS Safety Report 13830798 (Version 1)
Quarter: 2017Q3

REPORT INFORMATION
  Report Type: Spontaneous
  Country: JP (occurrence: JP)
  Receive Date: 20170803
  Receipt Date: 20170803
  Transmission Date: 20171127
  Serious: Yes (Hospitalization, Other)
  Sender: FDA-Public Use
  Company Number: JP-PFIZER INC-2016514609

PATIENT
  Age: 6 Year
  Sex: Male

DRUGS (13)
  1. FCZ [Concomitant]
  2. METHOTREXATE SODIUM. [Suspect]
     Active Substance: METHOTREXATE SODIUM
     Dosage: 7.5 MG, WEEKLY (INCREASED)/ 15 MG/M2, WEEKLY (DOSE WAS INCREASED TO)
     Dates: start: 199112
  3. PIPERACILLIN SODIUM [Concomitant]
     Active Substance: PIPERACILLIN SODIUM
     Indication: SEPSIS
     Dosage: UNK
  4. SALAZOPYRIN [Concomitant]
     Active Substance: SULFASALAZINE
     Indication: JUVENILE IDIOPATHIC ARTHRITIS
     Dosage: 50 MG/KG, DAILY
     Dates: start: 199107
  5. METHOTREXATE SODIUM. [Suspect]
     Active Substance: METHOTREXATE SODIUM
     Dosage: 5 MG, WEEKLY
     Dates: start: 19930323
  6. PREDNISONE. [Concomitant]
     Active Substance: PREDNISONE
     Indication: JUVENILE IDIOPATHIC ARTHRITIS
     Dosage: 2 MG/KG, DAILY
     Dates: start: 198804
  7. PREDNISONE. [Concomitant]
     Active Substance: PREDNISONE
     Dosage: UNK (PRED DOSE WAS DECREASED)
     Dates: start: 1988, end: 19881030
  8. AMK [Concomitant]
     Indication: SEPSIS
     Dosage: UNK
  9. PREDNISONE. [Concomitant]
     Active Substance: PREDNISONE
     Dosage: 10 MG, DAILY
  10. METHOTREXATE SODIUM. [Suspect]
     Active Substance: METHOTREXATE SODIUM
     Indication: JUVENILE IDIOPATHIC ARTHRITIS
     Dosage: 10 MG/M2, WEEKLY
     Dates: start: 199107
  11. ASPIRIN. [Concomitant]
     Active Substance: ASPIRIN
     Indication: JUVENILE IDIOPATHIC ARTHRITIS
     Dosage: 90 MG/KG, DAILY
     Dates: start: 198804
  12. METHOTREXATE SODIUM. [Suspect]
     Active Substance: METHOTREXATE SODIUM
     Dosage: 15 MG/M2, WEEKLY (DOSE WAS INCREASED TO)
  13. KETOPROFEN. [Concomitant]
     Active Substance: KETOPROFEN
     Dosage: UNK

REACTIONS (4)
  - Hypersensitivity [Unknown]
  - Shock haemorrhagic [Unknown]
  - Pancytopenia [Unknown]
  - Epistaxis [Recovered/Resolved]
